FAERS Safety Report 14827237 (Version 1)
Quarter: 2018Q2

REPORT INFORMATION
  Report Type: Spontaneous
  Country: US (occurrence: US)
  Receive Date: 20180430
  Receipt Date: 20180430
  Transmission Date: 20180711
  Serious: No
  Sender: FDA-Public Use
  Company Number: US-ABBVIE-17P-163-2054228-00

PATIENT
  Sex: Female
  Weight: 55.84 kg

DRUGS (3)
  1. CREON [Suspect]
     Active Substance: PANCRELIPASE AMYLASE\PANCRELIPASE LIPASE\PANCRELIPASE PROTEASE
     Route: 048
  2. CREON [Suspect]
     Active Substance: PANCRELIPASE AMYLASE\PANCRELIPASE LIPASE\PANCRELIPASE PROTEASE
     Indication: PANCREATIC FAILURE
     Dosage: 3 CAPSULES WITH EACH MEAL AND ONE CAPSULE WITH SNACKS
     Route: 048
     Dates: start: 201701, end: 201701
  3. CREON [Suspect]
     Active Substance: PANCRELIPASE AMYLASE\PANCRELIPASE LIPASE\PANCRELIPASE PROTEASE
     Indication: PANCREATIC FAILURE
     Dosage: 1 CAPSULE IN THE MORNING, ONE CAPSULE AT LUNCH AND 3 CAPSULES WITH DINNER
     Route: 048

REACTIONS (2)
  - Body height decreased [Not Recovered/Not Resolved]
  - Diarrhoea [Not Recovered/Not Resolved]
